FAERS Safety Report 15547246 (Version 1)
Quarter: 2018Q4

REPORT INFORMATION
  Report Type: Spontaneous
  Country: US (occurrence: US)
  Receive Date: 20181023
  Receipt Date: 20181023
  Transmission Date: 20190205
  Serious: Yes (Disabling)
  Sender: FDA-Public Use
  Company Number: None

PATIENT
  Age: 71 Year
  Sex: Female
  Weight: 111.13 kg

DRUGS (1)
  1. GADAVIST [Suspect]
     Active Substance: GADOBUTROL

REACTIONS (9)
  - Burning sensation [None]
  - Pain [None]
  - Swelling [None]
  - Alopecia [None]
  - Visual impairment [None]
  - Memory impairment [None]
  - Gait disturbance [None]
  - Product complaint [None]
  - General physical health deterioration [None]
